FAERS Safety Report 11967402 (Version 2)
Quarter: 2016Q1

REPORT INFORMATION
  Report Type: Spontaneous
  Country: US (occurrence: US)
  Receive Date: 20160127
  Receipt Date: 20160201
  Transmission Date: 20160526
  Serious: Yes (Other)
  Sender: FDA-Public Use
  Company Number: US-PFIZER INC-2016044714

PATIENT
  Age: 43 Year
  Sex: Male

DRUGS (2)
  1. VIAGRA [Suspect]
     Active Substance: SILDENAFIL CITRATE
     Dosage: 100 MG, AS NEEDED ABOUT ONCE A WEEK
     Route: 048
  2. VIAGRA [Suspect]
     Active Substance: SILDENAFIL CITRATE
     Indication: CARDIOVASCULAR DISORDER
     Dosage: 50 MG, UNK

REACTIONS (7)
  - Multiple fractures [Recovered/Resolved]
  - Product use issue [Unknown]
  - Visual impairment [Not Recovered/Not Resolved]
  - Road traffic accident [Recovered/Resolved]
  - Head injury [Recovered/Resolved]
  - Drug ineffective [Not Recovered/Not Resolved]
  - Concussion [Recovered/Resolved]

NARRATIVE: CASE EVENT DATE: 200904
